FAERS Safety Report 16774788 (Version 1)
Quarter: 2019Q3

REPORT INFORMATION
  Report Type: Spontaneous
  Country: SE (occurrence: SE)
  Receive Date: 20190905
  Receipt Date: 20190905
  Transmission Date: 20191005
  Serious: Yes (Hospitalization)
  Sender: FDA-Public Use
  Company Number: SE-TEVA-2019-SE-1101068

PATIENT
  Age: 22 Year
  Sex: Male

DRUGS (3)
  1. ELVANSE [Concomitant]
     Active Substance: LISDEXAMFETAMINE DIMESYLATE
  2. LYRICA [Concomitant]
     Active Substance: PREGABALIN
     Dosage: ONE TABLET
  3. TRAMADOL. [Suspect]
     Active Substance: TRAMADOL
     Dosage: 400 MG
     Dates: start: 20190807, end: 20190807

REACTIONS (1)
  - Epilepsy [Recovered/Resolved]

NARRATIVE: CASE EVENT DATE: 20190807
